FAERS Safety Report 5702437-7 (Version None)
Quarter: 2008Q2

REPORT INFORMATION
  Report Type: 
  Country: None (occurrence: None)
  Receive Date: 20080408
  Receipt Date: 20080325
  Transmission Date: 20081010
  Serious: Yes (Death, Hospitalization)
  Sender: FDA-Public Use
  Company Number: 107#08#2008-01776

PATIENT
  Age: 66 Year
  Sex: Female

DRUGS (1)
  1. AMIODARONE HCL [Suspect]
     Indication: SUPRAVENTRICULAR TACHYCARDIA
     Dosage: 400 MG FOR A WEEK AND THEN 200 MG FOR 95 DAYS UNTIL 1 DAY BEFORE HER DEATH

REACTIONS (5)
  - CARDIAC FAILURE [None]
  - FIBROSIS [None]
  - HYPOTHYROIDISM [None]
  - LABORATORY TEST ABNORMAL [None]
  - THYROID DISORDER [None]
